FAERS Safety Report 5179234-7 (Version None)
Quarter: 2006Q4

REPORT INFORMATION
  Report Type: 
  Country: None (occurrence: None)
  Receive Date: 20061211
  Receipt Date: 20061128
  Transmission Date: 20070319
  Serious: Yes (Hospitalization)
  Sender: FDA-Public Use
  Company Number: 2006PV024060

PATIENT
  Age: 54 Year
  Sex: Female
  Weight: 106.1417 kg

DRUGS (12)
  1. BYETTA [Suspect]
     Indication: DIABETES MELLITUS NON-INSULIN-DEPENDENT
     Dosage: SEE IMAGE
     Route: 058
     Dates: start: 20060407, end: 20060505
  2. BYETTA [Suspect]
     Indication: DIABETES MELLITUS NON-INSULIN-DEPENDENT
     Dosage: SEE IMAGE
     Route: 058
     Dates: start: 20060506
  3. ALTACE [Concomitant]
  4. CORGARD [Concomitant]
  5. LIPITOR [Concomitant]
  6. FOLIC ACID [Concomitant]
  7. LASIX [Concomitant]
  8. POTASSIUM ACETATE [Concomitant]
  9. PLAVIX [Concomitant]
  10. GLUCOPHAGE [Concomitant]
  11. GLUCOTROL [Concomitant]
  12. ASPIRIN [Concomitant]

REACTIONS (15)
  - ABDOMINAL DISTENSION [None]
  - BLOOD GLUCOSE DECREASED [None]
  - BLOOD GLUCOSE INCREASED [None]
  - BLOOD PRESSURE DECREASED [None]
  - BRONCHITIS [None]
  - DECREASED APPETITE [None]
  - DEHYDRATION [None]
  - DIZZINESS [None]
  - FEELING ABNORMAL [None]
  - HEADACHE [None]
  - HYPERHIDROSIS [None]
  - INJECTION SITE BRUISING [None]
  - INJECTION SITE HAEMORRHAGE [None]
  - TRANSIENT ISCHAEMIC ATTACK [None]
  - WEIGHT DECREASED [None]
